FAERS Safety Report 17699184 (Version 1)
Quarter: 2020Q2

REPORT INFORMATION
  Report Type: Spontaneous
  Country: US (occurrence: US)
  Receive Date: 20200422
  Receipt Date: 20200422
  Transmission Date: 20200714
  Serious: No
  Sender: FDA-Public Use
  Company Number: None

PATIENT
  Age: 33 Year
  Sex: Female
  Weight: 131.54 kg

DRUGS (2)
  1. ZOLOFT [Suspect]
     Active Substance: SERTRALINE HYDROCHLORIDE
  2. SUBOXONE [Suspect]
     Active Substance: BUPRENORPHINE HYDROCHLORIDE\NALOXONE HYDROCHLORIDE

REACTIONS (10)
  - Affect lability [None]
  - Tremor [None]
  - Product dosage form issue [None]
  - Tongue blistering [None]
  - Anxiety [None]
  - Apathy [None]
  - Nonspecific reaction [None]
  - Peripheral swelling [None]
  - Fatigue [None]
  - Glossitis [None]

NARRATIVE: CASE EVENT DATE: 20190708
